FAERS Safety Report 12762649 (Version 1)
Quarter: 2016Q3

REPORT INFORMATION
  Report Type: Spontaneous
  Country: KR (occurrence: KR)
  Receive Date: 20160920
  Receipt Date: 20160920
  Transmission Date: 20161109
  Serious: Yes (Hospitalization)
  Sender: FDA-Public Use
  Company Number: KR-SA-2016SA168899

PATIENT
  Age: 21 Year
  Sex: Male

DRUGS (1)
  1. STILNOX CR [Suspect]
     Active Substance: ZOLPIDEM TARTRATE
     Indication: INSOMNIA
     Route: 048
     Dates: start: 201608, end: 201608

REACTIONS (4)
  - Incoherent [Unknown]
  - Amnesia [Unknown]
  - Drug ineffective [Unknown]
  - Hallucination [Unknown]
